FAERS Safety Report 15790771 (Version 2)
Quarter: 2019Q1

REPORT INFORMATION
  Report Type: Report from Study
  Country: US (occurrence: US)
  Receive Date: 20190104
  Receipt Date: 20190311
  Transmission Date: 20190417
  Serious: Yes (Hospitalization, Other)
  Sender: FDA-Public Use
  Company Number: US-SHIRE-US201900047

PATIENT
  Age: 78 Year
  Sex: Male

DRUGS (2)
  1. GATTEX [Suspect]
     Active Substance: TEDUGLUTIDE\WATER
     Dosage: 0.53 MILLIGRAM, 1X/DAY:QD
     Route: 058
     Dates: start: 20190212
  2. GATTEX [Suspect]
     Active Substance: TEDUGLUTIDE\WATER
     Indication: SHORT-BOWEL SYNDROME
     Dosage: 0.3060 UNKNOWN UNIT
     Route: 065
     Dates: start: 20181018

REACTIONS (4)
  - Penile discharge [Recovering/Resolving]
  - Decreased appetite [Recovering/Resolving]
  - Anuria [Recovering/Resolving]
  - Fistula [Unknown]

NARRATIVE: CASE EVENT DATE: 201902
